FAERS Safety Report 6858034-3 (Version None)
Quarter: 2010Q2

REPORT INFORMATION
  Report Type: 
  Country: None (occurrence: None)
  Receive Date: 20100526
  Receipt Date: 20090427
  Transmission Date: 20101027
  Serious: Yes (Other)
  Sender: FDA-Public Use
  Company Number: 260448

PATIENT
  Age: 64 Year
  Sex: Female
  Weight: 86.2 kg

DRUGS (12)
  1. ACTIVELLA [Suspect]
     Indication: HORMONE REPLACEMENT THERAPY
     Dosage: , ORAL
     Route: 048
  2. PREMPRO [Suspect]
     Indication: HORMONE REPLACEMENT THERAPY
     Dosage: 0.625MG/5MG, ORAL
     Route: 048
     Dates: start: 19950101
  3. PREMPHASE (PREMARIN;CYCRIN 14/14) [Suspect]
     Indication: HORMONE REPLACEMENT THERAPY
     Dosage: 0.625MG/5MG, ORAL
     Route: 048
     Dates: start: 19940101
  4. PREMARIN [Suspect]
     Indication: HORMONE REPLACEMENT THERAPY
     Dosage: 0.625MG/0.9 MG, ORAL
     Route: 048
     Dates: start: 19960101, end: 20020101
  5. PROVERA [Suspect]
     Indication: HORMONE REPLACEMENT THERAPY
     Dosage: 5 MG, ORAL
     Route: 048
     Dates: start: 19970101, end: 20020101
  6. ESTRATAB [Suspect]
     Indication: HORMONE REPLACEMENT THERAPY
     Dosage: 0.625 MG, ORAL
     Route: 048
     Dates: start: 19980101, end: 19980101
  7. ORTHO-PREFEST (ESTRADIOL, NORGESTIMATE) [Suspect]
     Indication: HORMONE REPLACEMENT THERAPY
     Dosage: 1MG/0.09MG
     Dates: start: 20021122
  8. ORTHO NOVUM 0.5/50 21 TAB [Concomitant]
  9. COZAAR [Concomitant]
  10. FUROSEMIDE [Concomitant]
  11. IBUPROFEN [Concomitant]
  12. VICODIN [Concomitant]

REACTIONS (1)
  - BREAST CANCER [None]
